FAERS Safety Report 14417435 (Version 2)
Quarter: 2018Q2

REPORT INFORMATION
  Report Type: Spontaneous
  Country: US (occurrence: US)
  Receive Date: 20180122
  Receipt Date: 20180629
  Transmission Date: 20180711
  Serious: Yes (Hospitalization)
  Sender: FDA-Public Use
  Company Number: US-JNJFOC-20180120698

PATIENT
  Age: 50 Year
  Sex: Female

DRUGS (1)
  1. INVOKANA [Suspect]
     Active Substance: CANAGLIFLOZIN
     Indication: TYPE 2 DIABETES MELLITUS
     Route: 048
     Dates: start: 20160316

REACTIONS (4)
  - Diabetic foot infection [Recovering/Resolving]
  - Toe amputation [Recovering/Resolving]
  - Osteomyelitis [Recovered/Resolved]
  - Gangrene [Recovering/Resolving]

NARRATIVE: CASE EVENT DATE: 201605
